FAERS Safety Report 15282837 (Version 3)
Quarter: 2018Q3

REPORT INFORMATION
  Report Type: Spontaneous
  Country: KR (occurrence: KR)
  Receive Date: 20180816
  Receipt Date: 20180902
  Transmission Date: 20181010
  Serious: Yes (Death, Other)
  Sender: FDA-Public Use
  Company Number: KR-009507513-1808KOR004934

PATIENT
  Age: 58 Year
  Sex: Female

DRUGS (24)
  1. KEYTRUDA [Suspect]
     Active Substance: PEMBROLIZUMAB
     Indication: CHOLANGIOCARCINOMA
     Dosage: QUANTITY: 2; DAYS: 1
     Dates: start: 20180608
  2. HUMALOG [Concomitant]
     Active Substance: INSULIN LISPRO
     Dosage: 100IU/ML, QUANTITY: 0; DAYS: 35
     Dates: start: 20180606, end: 20180705
  3. DEXTROSE. [Concomitant]
     Active Substance: DEXTROSE
     Dosage: QUANTITY: 20; DAYS: 20
     Dates: start: 20180606, end: 20180706
  4. ALBUMIN HUMAN [Concomitant]
     Active Substance: ALBUMIN HUMAN
     Dosage: QUANTITY: 1; DAYS: 1
     Dates: start: 20180618
  5. PENIRAMIN [Concomitant]
     Dosage: QUANTITY: 2; DAYS: 2
     Dates: start: 20180615, end: 20180624
  6. WINUF PERI [Concomitant]
     Dosage: QUANTITY: 18; DAYS:18
     Dates: start: 20180609, end: 20180706
  7. HEPARIN SODIUM. [Concomitant]
     Active Substance: HEPARIN SODIUM
     Dosage: QUANTITY: 4; DAYS: 3
     Dates: start: 20180610, end: 20180624
  8. ZIPAN (PROMETHAZINE HYDROCHLORIDE) [Concomitant]
     Dosage: 50MG/ML, QUANTITY: 3; DAYS: 3
     Dates: start: 20180614, end: 20180706
  9. NAXEN F [Concomitant]
     Dosage: QUANTITY: 15; DAYS: 15
     Dates: start: 20180606, end: 20180620
  10. NEXIUM [Concomitant]
     Active Substance: ESOMEPRAZOLE MAGNESIUM
     Dosage: QUANTITY: 12; DAYS: 12
     Dates: start: 20180624, end: 20180705
  11. MEGACE F [Concomitant]
     Dosage: QUANTITY: 16; DAYS: 16
     Dates: start: 20180606, end: 20180621
  12. OCODONE [Concomitant]
     Dosage: QUANTITY: 7; DAYS: 4
     Dates: start: 20180606, end: 20180628
  13. OCODONE [Concomitant]
     Dosage: QUANTITY: 20; DAYS: 19
     Dates: start: 20180607, end: 20180705
  14. DENOGAN [Concomitant]
     Active Substance: PROPACETAMOL HYDROCHLORIDE
     Dosage: QUANTITY: 5; DAYS: 5
     Dates: start: 20180610, end: 20180706
  15. DEXTROSE. [Concomitant]
     Active Substance: DEXTROSE
     Dosage: QUANTITY: 52; DAYS: 23
     Dates: start: 20180610, end: 20180706
  16. CALCIUM GLUCONATE. [Concomitant]
     Active Substance: CALCIUM GLUCONATE
     Dosage: QUANTITY: 10; DAYS: 10
     Dates: start: 20180607, end: 20180624
  17. GLUCOBAY [Concomitant]
     Active Substance: ACARBOSE
     Dosage: QUANTITY: 6; DAYS: 3
     Dates: start: 20180606, end: 20180608
  18. ALBUMIN HUMAN [Concomitant]
     Active Substance: ALBUMIN HUMAN
     Dosage: QUANTITY: 3; DAYS: 3
     Dates: start: 20180611, end: 20180624
  19. LEVEMIR [Concomitant]
     Active Substance: INSULIN DETEMIR
     Dosage: QUANTITY: 1; DAYS: 1
     Dates: start: 20180614
  20. SODIUM CHLORIDE. [Concomitant]
     Active Substance: SODIUM CHLORIDE
     Dosage: QUANTITY: 25; DAYS: 25
     Dates: start: 20180607, end: 20180703
  21. PIPERACILLIN AND TAZOBACTAM [Concomitant]
     Active Substance: PIPERACILLIN SODIUM\TAZOBACTAM SODIUM
     Dosage: QUANTITY: 45; DAYS: 16
     Dates: start: 20180610, end: 20180706
  22. KEYTRUDA [Suspect]
     Active Substance: PEMBROLIZUMAB
     Indication: HEPATIC CANCER
  23. SODIUM CHLORIDE. [Concomitant]
     Active Substance: SODIUM CHLORIDE
     Dosage: QUALITY: 19, DAYS:19
     Dates: start: 20180606, end: 20180705
  24. SODIUM CHLORIDE. [Concomitant]
     Active Substance: SODIUM CHLORIDE
     Dosage: QUANTITY: 30; DAYS: 30
     Dates: start: 20180607, end: 20180705

REACTIONS (2)
  - Malignant neoplasm progression [Fatal]
  - Product use in unapproved indication [Unknown]

NARRATIVE: CASE EVENT DATE: 2018
